FAERS Safety Report 9319093 (Version 1)
Quarter: 2013Q2

REPORT INFORMATION
  Report Type: Spontaneous
  Country: US (occurrence: None)
  Receive Date: 20130524
  Receipt Date: 20130524
  Transmission Date: 20140414
  Serious: Yes (Hospitalization)
  Sender: FDA-Public Use
  Company Number: 20130243

PATIENT
  Age: 51 Year
  Sex: Female

DRUGS (13)
  1. VENOFER (IRON SUCROSE INJECTION, USP) (2340-10) 20 MG/ML [Suspect]
     Indication: IRON DEFICIENCY ANAEMIA
     Dosage: 200 MG IV PUSH?
     Route: 040
     Dates: start: 20130422, end: 20130422
  2. VENOFER (IRON SUCROSE INJECTION, USP) (2340-10) 20 MG/ML [Suspect]
     Indication: RENAL FAILURE CHRONIC
     Dosage: 200 MG IV PUSH?
     Route: 040
     Dates: start: 20130422, end: 20130422
  3. ZOLPIDEM (AMBIEN) [Concomitant]
  4. ACETYLSALICYLIC ACID (ASPIRIN) [Concomitant]
  5. ATORVASTATIN [Concomitant]
  6. BUTALBITAL [Concomitant]
  7. ACETAMINOPHEN [Concomitant]
  8. HYDROCHLOROTHIAZIDE [Concomitant]
  9. CLOPIDOGREL (PLAVIX) [Concomitant]
  10. SIMVASTATIN [Concomitant]
  11. VITAMIN D [Concomitant]
  12. HYDROXYZINE [Concomitant]
  13. CALCITRIOL [Concomitant]

REACTIONS (5)
  - Hypotension [None]
  - Lethargy [None]
  - Dizziness [None]
  - Hypersensitivity [None]
  - Infusion related reaction [None]
